FAERS Safety Report 11483894 (Version 1)
Quarter: 2015Q3

REPORT INFORMATION
  Report Type: Spontaneous
  Country: JP (occurrence: JP)
  Receive Date: 20150909
  Receipt Date: 20150909
  Transmission Date: 20151125
  Serious: Yes (Life-Threatening, Other)
  Sender: FDA-Public Use
  Company Number: JP-ASTRAZENECA-2015SE86647

PATIENT
  Age: 30 Year
  Sex: Male
  Weight: 80 kg

DRUGS (17)
  1. SEROQUEL [Suspect]
     Active Substance: QUETIAPINE FUMARATE
     Indication: SUICIDE ATTEMPT
     Route: 048
     Dates: start: 20150831, end: 20150831
  2. DRUG FOR PEPTIC ULCER [Suspect]
     Active Substance: UNSPECIFIED INGREDIENT
     Indication: SUICIDE ATTEMPT
     Route: 048
     Dates: start: 20150831, end: 20150831
  3. DRUG FOR DIGESTIVE ORGAN [Suspect]
     Active Substance: UNSPECIFIED INGREDIENT
     Indication: SUICIDE ATTEMPT
     Route: 048
     Dates: start: 20150831, end: 20150831
  4. ANTIDEPRESSANT DRUG [Suspect]
     Active Substance: UNSPECIFIED INGREDIENT
     Indication: SUICIDE ATTEMPT
     Route: 048
     Dates: start: 20150831, end: 20150831
  5. ANTIDEPRESSANT DRUG [Suspect]
     Active Substance: UNSPECIFIED INGREDIENT
     Indication: SUICIDE ATTEMPT
     Route: 048
     Dates: start: 20150831, end: 20150831
  6. PSYCHOTROPIC DRUGS (UNSPECIFIED) [Suspect]
     Active Substance: UNSPECIFIED INGREDIENT
     Indication: SUICIDE ATTEMPT
     Route: 048
     Dates: start: 20150831, end: 20150831
  7. PSYCHOTROPIC DRUGS (UNSPECIFIED) [Suspect]
     Active Substance: UNSPECIFIED INGREDIENT
     Indication: SUICIDE ATTEMPT
     Route: 048
     Dates: start: 20150831, end: 20150831
  8. ANTIEPILEPTIC DRUGS [Suspect]
     Active Substance: UNSPECIFIED INGREDIENT
     Indication: SUICIDE ATTEMPT
     Route: 048
     Dates: start: 20150831, end: 20150831
  9. HYPNOTIC/SEDATIVE AND ANTIANXIETY DRUG [Suspect]
     Active Substance: UNSPECIFIED INGREDIENT
     Indication: SUICIDE ATTEMPT
     Route: 048
     Dates: start: 20150831, end: 20150831
  10. HYPNOTIC/SEDATIVE AND ANTIANXIETY DRUG [Suspect]
     Active Substance: UNSPECIFIED INGREDIENT
     Indication: SUICIDE ATTEMPT
     Route: 048
     Dates: start: 20150831, end: 20150831
  11. ANTIDEPRESSANT DRUG [Suspect]
     Active Substance: UNSPECIFIED INGREDIENT
     Indication: SUICIDE ATTEMPT
     Route: 048
     Dates: start: 20150831, end: 20150831
  12. ANTIEPILEPTIC DRUGS [Suspect]
     Active Substance: UNSPECIFIED INGREDIENT
     Indication: SUICIDE ATTEMPT
     Route: 048
     Dates: start: 20150831, end: 20150831
  13. MYSLEE [Suspect]
     Active Substance: ZOLPIDEM TARTRATE
     Indication: SUICIDE ATTEMPT
     Route: 048
     Dates: start: 20150831, end: 20150831
  14. PSYCHOTROPIC DRUGS (UNSPECIFIED) [Suspect]
     Active Substance: UNSPECIFIED INGREDIENT
     Indication: SUICIDE ATTEMPT
     Route: 048
     Dates: start: 20150831, end: 20150831
  15. HYPNOTIC/SEDATIVE AND ANTIANXIETY DRUG [Suspect]
     Active Substance: UNSPECIFIED INGREDIENT
     Indication: SUICIDE ATTEMPT
     Route: 048
     Dates: start: 20150831, end: 20150831
  16. DRUG FOR PEPTIC ULCER [Suspect]
     Active Substance: UNSPECIFIED INGREDIENT
     Indication: PEPTIC ULCER
     Route: 048
     Dates: start: 20150831, end: 20150831
  17. DRUG FOR DIGESTIVE ORGAN [Suspect]
     Active Substance: UNSPECIFIED INGREDIENT
     Indication: DYSPEPSIA
     Route: 048
     Dates: start: 20150831, end: 20150831

REACTIONS (3)
  - Intentional overdose [Unknown]
  - Suicide attempt [Unknown]
  - Somnolence [Unknown]

NARRATIVE: CASE EVENT DATE: 20150831
